FAERS Safety Report 17356559 (Version 1)
Quarter: 2020Q1

REPORT INFORMATION
  Report Type: Spontaneous
  Country: US (occurrence: US)
  Receive Date: 20200131
  Receipt Date: 20200131
  Transmission Date: 20200409
  Serious: No
  Sender: FDA-Public Use
  Company Number: US-ELI_LILLY_AND_COMPANY-US202001013295

PATIENT
  Sex: Male

DRUGS (2)
  1. TALTZ [Suspect]
     Active Substance: IXEKIZUMAB
     Indication: PSORIATIC ARTHROPATHY
     Dosage: OTHER (2 LOADING DOSES)
     Route: 065
  2. TALTZ [Suspect]
     Active Substance: IXEKIZUMAB
     Dosage: OTHER (2 WEEKS AFTER LOADING DOSES)
     Route: 065

REACTIONS (4)
  - Injection site erosion [Recovered/Resolved]
  - Injection site ulcer [Recovered/Resolved]
  - Overdose [Unknown]
  - Injection site scar [Recovered/Resolved]
